FAERS Safety Report 7288121-X (Version None)
Quarter: 2011Q1

REPORT INFORMATION
  Report Type: 
  Country: None (occurrence: None)
  Receive Date: 20110211
  Receipt Date: 20101021
  Transmission Date: 20110831
  Serious: No
  Sender: FDA-Public Use
  Company Number: US-BAYER-201022836BCC

PATIENT
  Sex: Male

DRUGS (5)
  1. FLEXERIL [Concomitant]
  2. TRAMADOL HCL [Concomitant]
  3. PRILOSEC [Concomitant]
  4. PROZAC [Concomitant]
  5. ALEVE [Suspect]
     Indication: ANALGESIC THERAPY
     Route: 048

REACTIONS (1)
  - DRUG SCREEN POSITIVE [None]
